FAERS Safety Report 23957205 (Version 9)
Quarter: 2025Q1

REPORT INFORMATION
  Report Type: Report from Study
  Country: US (occurrence: US)
  Receive Date: 20240610
  Receipt Date: 20250320
  Transmission Date: 20250409
  Serious: Yes (Hospitalization, Other)
  Sender: TAKEDA
  Company Number: US-TAKEDA-2023TUS026504

PATIENT
  Age: 60 Year
  Sex: Female
  Weight: 64 kg

DRUGS (14)
  1. HUMAN IMMUNOGLOBULIN G\HYALURONIDASE RECOMBINANT HUMAN [Suspect]
     Active Substance: HUMAN IMMUNOGLOBULIN G\HYALURONIDASE (HUMAN RECOMBINANT)
     Indication: Immunodeficiency common variable
     Dosage: 35 GRAM, Q4WEEKS
     Dates: start: 20230127
  2. HUMAN IMMUNOGLOBULIN G\HYALURONIDASE RECOMBINANT HUMAN [Suspect]
     Active Substance: HUMAN IMMUNOGLOBULIN G\HYALURONIDASE (HUMAN RECOMBINANT)
     Dosage: 40 GRAM, Q4WEEKS
  3. HUMAN IMMUNOGLOBULIN G\HYALURONIDASE RECOMBINANT HUMAN [Suspect]
     Active Substance: HUMAN IMMUNOGLOBULIN G\HYALURONIDASE (HUMAN RECOMBINANT)
     Dosage: 20 GRAM, Q2WEEKS
  4. MACRODANTIN [Suspect]
     Active Substance: NITROFURANTOIN
     Indication: Product used for unknown indication
  5. ACETAMINOPHEN [Concomitant]
     Active Substance: ACETAMINOPHEN
  6. SODIUM CHLORIDE [Concomitant]
     Active Substance: SODIUM CHLORIDE
  7. DULOXETINE HYDROCHLORIDE [Concomitant]
     Active Substance: DULOXETINE HYDROCHLORIDE
  8. LIDOCAINE [Concomitant]
     Active Substance: LIDOCAINE
  9. MAGNESIUM [Concomitant]
     Active Substance: MAGNESIUM
  10. BENADRYL [Concomitant]
     Active Substance: DIPHENHYDRAMINE HYDROCHLORIDE
  11. DIPHENHYDRAMINE HYDROCHLORIDE [Concomitant]
     Active Substance: DIPHENHYDRAMINE HYDROCHLORIDE
  12. ONDANSETRON HYDROCHLORIDE [Concomitant]
     Active Substance: ONDANSETRON HYDROCHLORIDE
  13. DILTIAZEM [Concomitant]
     Active Substance: DILTIAZEM
  14. EPINEPHRINE [Concomitant]
     Active Substance: EPINEPHRINE

REACTIONS (20)
  - Pneumonia [Unknown]
  - Meningitis aseptic [Unknown]
  - Candida infection [Not Recovered/Not Resolved]
  - Urinary tract infection [Not Recovered/Not Resolved]
  - Sinusitis [Unknown]
  - Oropharyngeal candidiasis [Unknown]
  - Insurance issue [Unknown]
  - Oral mucosal eruption [Not Recovered/Not Resolved]
  - Pharyngeal enanthema [Not Recovered/Not Resolved]
  - Fungal infection [Unknown]
  - Upper limb fracture [Unknown]
  - Infection [Unknown]
  - Product dose omission issue [Unknown]
  - Incorrect product administration duration [Unknown]
  - Gluten sensitivity [Unknown]
  - Wrist fracture [Unknown]
  - Bronchitis [Unknown]
  - Lung disorder [Unknown]
  - Product dose omission in error [Unknown]
  - Headache [Unknown]

NARRATIVE: CASE EVENT DATE: 20240501
